FAERS Safety Report 21890960 (Version 2)
Quarter: 2023Q1

REPORT INFORMATION
  Report Type: Spontaneous
  Country: US (occurrence: US)
  Receive Date: 20230120
  Receipt Date: 20230302
  Transmission Date: 20230417
  Serious: Yes (Hospitalization, Other)
  Sender: FDA-Public Use
  Company Number: US-009507513-2301USA006882

PATIENT
  Age: 65 Year
  Sex: Female

DRUGS (4)
  1. KEYTRUDA [Suspect]
     Active Substance: PEMBROLIZUMAB
     Indication: Endometrial cancer
     Dosage: UNK
  2. LENVATINIB MESYLATE [Suspect]
     Active Substance: LENVATINIB MESYLATE
     Indication: Endometrial cancer
     Dosage: 14 MILLIGRAM, QD
     Route: 048
     Dates: start: 20220914, end: 20220917
  3. LENVATINIB MESYLATE [Suspect]
     Active Substance: LENVATINIB MESYLATE
     Dosage: 14 MILLIGRAM, QD
     Route: 048
     Dates: start: 20220929, end: 20230114
  4. LENVATINIB MESYLATE [Suspect]
     Active Substance: LENVATINIB MESYLATE
     Dosage: 14 MILLIGRAM, QD
     Route: 048
     Dates: start: 202302

REACTIONS (8)
  - Acute myocardial infarction [Unknown]
  - Pneumonitis [Unknown]
  - Liver function test increased [Recovering/Resolving]
  - Upper respiratory tract infection [Recovering/Resolving]
  - Pleural effusion [Unknown]
  - Blood thyroid stimulating hormone increased [Unknown]
  - Blood pressure increased [Unknown]
  - Product use issue [Unknown]

NARRATIVE: CASE EVENT DATE: 20221201
